FAERS Safety Report 17222547 (Version 3)
Quarter: 2020Q1

REPORT INFORMATION
  Report Type: Report from Study
  Country: JP (occurrence: JP)
  Receive Date: 20200101
  Receipt Date: 20200321
  Transmission Date: 20200409
  Serious: Yes (Other)
  Sender: FDA-Public Use
  Company Number: JP-AMGEN-JPNCT2019216897

PATIENT
  Age: 64 Year
  Sex: Male

DRUGS (18)
  1. EQUA [Concomitant]
     Active Substance: VILDAGLIPTIN
     Dosage: 50 MG
     Route: 048
  2. NORVASC [Concomitant]
     Active Substance: AMLODIPINE BESYLATE
     Indication: HYPERTENSION
     Dosage: 10 MILLIGRAM
     Route: 048
  3. ROCALTROL [Concomitant]
     Active Substance: CALCITRIOL
     Dosage: 0.5 UG
     Route: 048
  4. EQUA [Concomitant]
     Active Substance: VILDAGLIPTIN
     Indication: DIABETES MELLITUS
     Dosage: 50 MILLIGRAM
     Route: 048
  5. ROCALTROL [Concomitant]
     Active Substance: CALCITRIOL
     Dosage: 0.5 UG
     Route: 048
  6. EQUA [Concomitant]
     Active Substance: VILDAGLIPTIN
     Dosage: 50 MG
     Route: 048
  7. ARTIST [Concomitant]
     Active Substance: CARVEDILOL
     Dosage: 5 MG
     Route: 048
  8. ARTIST [Concomitant]
     Active Substance: CARVEDILOL
     Dosage: 5 MG
     Route: 048
  9. JADENU [Concomitant]
     Active Substance: DEFERASIROX
     Indication: MYELODYSPLASTIC SYNDROME
     Dosage: 370 MG
     Route: 048
     Dates: start: 20180404
  10. NORVASC [Concomitant]
     Active Substance: AMLODIPINE BESYLATE
     Dosage: 10 MG
     Route: 048
  11. ROCALTROL [Concomitant]
     Active Substance: CALCITRIOL
     Indication: RENAL FAILURE
     Dosage: 0.5 MICROGRAM
     Route: 048
  12. NORVASC [Concomitant]
     Active Substance: AMLODIPINE BESYLATE
     Dosage: 10 MG
     Route: 048
  13. BAYASPIRIN [Concomitant]
     Active Substance: ASPIRIN
     Dosage: 100 MILLIGRAM
     Route: 048
  14. DARBEPOETIN ALFA [Suspect]
     Active Substance: DARBEPOETIN ALFA
     Indication: MYELODYSPLASTIC SYNDROME
     Dosage: 120 MICROGRAM, QWK
     Route: 058
     Dates: start: 20180808, end: 20181003
  15. DARBEPOETIN ALFA [Suspect]
     Active Substance: DARBEPOETIN ALFA
     Dosage: 120 MICROGRAM, QWK
     Route: 058
     Dates: start: 20181121, end: 20181121
  16. RENAGEL [Concomitant]
     Active Substance: SEVELAMER HYDROCHLORIDE
     Indication: RENAL FAILURE
     Dosage: 500 MILLIGRAM
     Route: 048
  17. ARTIST [Concomitant]
     Active Substance: CARVEDILOL
     Indication: HYPERTENSION
     Dosage: 5 MILLIGRAM
     Route: 048
  18. BAYASPIRIN [Concomitant]
     Active Substance: ASPIRIN
     Dosage: 100 MG
     Route: 048

REACTIONS (2)
  - Shunt occlusion [Recovered/Resolved]
  - Skin ulcer [Recovered/Resolved with Sequelae]

NARRATIVE: CASE EVENT DATE: 20181024
